FAERS Safety Report 12190953 (Version 1)
Quarter: 2016Q1

REPORT INFORMATION
  Report Type: Spontaneous
  Country: US (occurrence: None)
  Receive Date: 20160317
  Receipt Date: 20160317
  Transmission Date: 20160526
  Serious: No
  Sender: FDA-Public Use
  Company Number: None

PATIENT
  Sex: Female

DRUGS (1)
  1. MAKENA [Suspect]
     Active Substance: HYDROXYPROGESTERONE CAPROATE
     Indication: PREMATURE LABOUR
     Dosage: 1ML (250 MG) ONCE WEEKLY  INTRAMUSCULARLY
     Route: 030
     Dates: start: 20151130, end: 20160209

REACTIONS (2)
  - Dyspnoea [None]
  - Rash [None]
